FAERS Safety Report 16209424 (Version 3)
Quarter: 2019Q2

REPORT INFORMATION
  Report Type: Spontaneous
  Country: JP (occurrence: JP)
  Receive Date: 20190417
  Receipt Date: 20190604
  Transmission Date: 20190711
  Serious: Yes (Death, Life-Threatening, Hospitalization, Other)
  Sender: FDA-Public Use
  Company Number: JP-009507513-1902JPN002600J

PATIENT
  Age: 38 Year
  Sex: Male
  Weight: 41 kg

DRUGS (8)
  1. DENOTAS [Concomitant]
     Active Substance: CALCIUM CARBONATE\CHOLECALCIFEROL\MAGNESIUM CARBONATE
     Indication: PROPHYLAXIS
     Dosage: 1 DOSAGE FORM, BID
     Route: 048
     Dates: start: 20181011, end: 20190409
  2. AMITIZA [Concomitant]
     Active Substance: LUBIPROSTONE
     Indication: CONSTIPATION
     Dosage: 1 DOSAGE FORM, BID
     Route: 048
     Dates: start: 20181207, end: 20190330
  3. RANMARK [Concomitant]
     Active Substance: DENOSUMAB
     Indication: METASTASES TO BONE
     Dosage: UNK
     Route: 058
  4. KEYTRUDA [Suspect]
     Active Substance: PEMBROLIZUMAB
     Indication: NON-SMALL CELL LUNG CANCER
     Dosage: 200 MILLIGRAM, Q3W
     Route: 041
     Dates: start: 20181019, end: 20190201
  5. ENSURE [Concomitant]
     Active Substance: AMINO ACIDS\DEXTROSE\ELECTROLYTES NOS\SOYBEAN OIL\VITAMINS
     Indication: DECREASED APPETITE
     Dosage: UNK, QD
     Route: 048
     Dates: end: 20190213
  6. ETIZOLAM [Concomitant]
     Active Substance: ETIZOLAM
     Indication: ANXIETY
     Dosage: UNK, PRN
     Route: 048
     Dates: start: 20190116, end: 20190409
  7. FAMOTIDINE OD [Concomitant]
     Active Substance: FAMOTIDINE
     Indication: ABDOMINAL DISCOMFORT
     Dosage: 2 DOSAGE FORM, BID
     Route: 048
     Dates: start: 20181128, end: 20190409
  8. ZOLPIDEM TARTRATE OD [Concomitant]
     Active Substance: ZOLPIDEM TARTRATE
     Indication: INSOMNIA
     Dosage: UNK, QD
     Route: 048
     Dates: start: 20180928, end: 20190409

REACTIONS (3)
  - Malignant neoplasm progression [Fatal]
  - Enterocolitis [Not Recovered/Not Resolved]
  - Superior vena cava syndrome [Not Recovered/Not Resolved]

NARRATIVE: CASE EVENT DATE: 20190213
